FAERS Safety Report 6313077-3 (Version None)
Quarter: 2009Q3

REPORT INFORMATION
  Report Type: 
  Country: None (occurrence: None)
  Receive Date: 20090814
  Receipt Date: 20090811
  Transmission Date: 20100115
  Serious: Yes (Hospitalization, Other)
  Sender: FDA-Public Use
  Company Number: 2009SP016204

PATIENT
  Age: 60 Year
  Sex: Male

DRUGS (1)
  1. INTRON A [Suspect]
     Indication: MALIGNANT MELANOMA

REACTIONS (5)
  - COMA [None]
  - CONVULSION [None]
  - GLIOSIS [None]
  - MENTAL STATUS CHANGES [None]
  - PYREXIA [None]
